FAERS Safety Report 16756348 (Version 1)
Quarter: 2019Q3

REPORT INFORMATION
  Report Type: Report from Study
  Country: ES (occurrence: ES)
  Receive Date: 20190829
  Receipt Date: 20190829
  Transmission Date: 20191005
  Serious: Yes (Life-Threatening, Hospitalization)
  Sender: FDA-Public Use
  Company Number: ES-TEVA-2019-ES-1098054

PATIENT
  Age: 32 Year
  Sex: Male

DRUGS (3)
  1. ARMOPL - ARMOLIPID PLUS 20 COMP (DIET) [Suspect]
     Active Substance: DIETARY SUPPLEMENT
     Indication: INTENTIONAL OVERDOSE
     Dosage: 6 GRAM
     Route: 048
     Dates: start: 20190410, end: 20190410
  2. MAGNESIO [MAGNESIUM] [Suspect]
     Active Substance: MAGNESIUM
     Indication: INTENTIONAL OVERDOSE
     Dosage: 18 GRAM
     Route: 048
     Dates: start: 20190410, end: 20190410
  3. ESCITALOPRAM [Suspect]
     Active Substance: ESCITALOPRAM OXALATE
     Indication: INTENTIONAL OVERDOSE
     Dosage: 560 MILLIGRAM
     Route: 048
     Dates: start: 20190410, end: 20190410

REACTIONS (2)
  - Intentional overdose [Recovered/Resolved]
  - Hypertransaminasaemia [Recovered/Resolved]

NARRATIVE: CASE EVENT DATE: 20190410
